FAERS Safety Report 5740077-4 (Version None)
Quarter: 2008Q2

REPORT INFORMATION
  Report Type: 
  Country: None (occurrence: None)
  Receive Date: 20080516
  Receipt Date: 20080513
  Transmission Date: 20081010
  Serious: Yes (Death, Hospitalization)
  Sender: FDA-Public Use
  Company Number: MX-JNJFOC-20080403922

PATIENT
  Age: 50 Year
  Sex: Male

DRUGS (3)
  1. REOPRO [Suspect]
     Indication: CORONARY ANGIOPLASTY
     Route: 042
  2. MIDAZOLAM HCL [Concomitant]
  3. FENTANYL CITRATE [Concomitant]

REACTIONS (4)
  - CORONARY ARTERY RESTENOSIS [None]
  - DRUG INEFFECTIVE [None]
  - MYOCARDIAL INFARCTION [None]
  - PHARMACEUTICAL PRODUCT COUNTERFEIT [None]
